FAERS Safety Report 13469554 (Version 1)
Quarter: 2017Q2

REPORT INFORMATION
  Report Type: Other
  Country: GB (occurrence: JP)
  Receive Date: 20170421
  Receipt Date: 20170421
  Transmission Date: 20170830
  Serious: Yes (Other)
  Sender: FDA-Public Use
  Company Number: JP-INTERNATIONAL MEDICATION SYSTEMS, LIMITED-1065692

PATIENT
  Age: 22 Month
  Sex: Female
  Weight: 11 kg

DRUGS (2)
  1. ATROPINE. [Suspect]
     Active Substance: ATROPINE
     Indication: SEDATION
  2. MIDAZOLAM [Concomitant]
     Active Substance: MIDAZOLAM HYDROCHLORIDE

REACTIONS (3)
  - Opsoclonus myoclonus [Recovered/Resolved]
  - Condition aggravated [Recovered/Resolved]
  - Respiratory distress [Recovered/Resolved]
